FAERS Safety Report 4446788-5 (Version None)
Quarter: 2004Q3

REPORT INFORMATION
  Report Type: 
  Country: None (occurrence: None)
  Receive Date: 20040910
  Receipt Date: 20040823
  Transmission Date: 20050211
  Serious: Yes (Hospitalization, Other)
  Sender: FDA-Public Use
  Company Number: 203400

PATIENT
  Age: 57 Year
  Sex: Female
  Weight: 65.318 kg

DRUGS (7)
  1. AVONEX [Suspect]
     Indication: MULTIPLE SCLEROSIS
     Dosage: 30 MCG QW IM
     Route: 030
     Dates: start: 20020901
  2. AVONEX [Suspect]
     Indication: MULTIPLE SCLEROSIS
     Dosage: 30 MCG QW IM
     Route: 030
  3. ASPIRIN [Concomitant]
  4. PREMARIN [Concomitant]
  5. ZOLOFT [Concomitant]
  6. LEXAPRO [Concomitant]
  7. CATAPRES [Concomitant]

REACTIONS (15)
  - BLOOD PRESSURE INCREASED [None]
  - BLOOD URINE [None]
  - CHOLELITHIASIS [None]
  - CONDITION AGGRAVATED [None]
  - DYSSTASIA [None]
  - FATIGUE [None]
  - INFLUENZA LIKE ILLNESS [None]
  - INJECTION SITE HAEMORRHAGE [None]
  - INJECTION SITE PAIN [None]
  - INTERVERTEBRAL DISC PROTRUSION [None]
  - PROGRESSIVE MULTIPLE SCLEROSIS [None]
  - STRESS SYMPTOMS [None]
  - TEMPORAL LOBE EPILEPSY [None]
  - WATER INTOXICATION [None]
  - WEIGHT INCREASED [None]
